FAERS Safety Report 10959808 (Version 1)
Quarter: 2015Q1

REPORT INFORMATION
  Report Type: Spontaneous
  Country: US (occurrence: None)
  Receive Date: 20150325
  Receipt Date: 20150325
  Transmission Date: 20150721
  Serious: No
  Sender: FDA-Public Use
  Company Number: PR5942

PATIENT

DRUGS (1)
  1. CHLOROTHIAZIDE SODIUM. [Suspect]
     Active Substance: CHLOROTHIAZIDE SODIUM
     Dates: start: 20150227

REACTIONS (2)
  - Injection site extravasation [None]
  - Injection site calcification [None]

NARRATIVE: CASE EVENT DATE: 20150227
